FAERS Safety Report 12648313 (Version 1)
Quarter: 2016Q3

REPORT INFORMATION
  Report Type: Spontaneous
  Country: JP (occurrence: JP)
  Receive Date: 20160812
  Receipt Date: 20160812
  Transmission Date: 20161109
  Serious: Yes (Other)
  Sender: FDA-Public Use
  Company Number: JP-009507513-1608JPN006268

PATIENT
  Age: 77 Year
  Sex: Male

DRUGS (19)
  1. ASPARA CA [Concomitant]
  2. METGLUCO [Concomitant]
     Active Substance: METFORMIN HYDROCHLORIDE
  3. CLOPIDOGREL [Concomitant]
     Active Substance: CLOPIDOGREL BISULFATE
  4. URIEF [Concomitant]
     Active Substance: SILODOSIN
  5. TIMOPTOL [Concomitant]
     Active Substance: TIMOLOL
  6. EPALRESTAT [Concomitant]
     Active Substance: EPALRESTAT
  7. ATORVASTATIN [Concomitant]
     Active Substance: ATORVASTATIN
  8. VOGLIBOSE [Concomitant]
     Active Substance: VOGLIBOSE
  9. DIQUAS [Concomitant]
     Active Substance: DIQUAFOSOL TETRASODIUM
  10. GLACTIV [Suspect]
     Active Substance: SITAGLIPTIN
     Indication: TYPE 2 DIABETES MELLITUS
     Dosage: 25 MG, QD
     Route: 048
     Dates: start: 201212, end: 201301
  11. AVOLVE [Concomitant]
     Active Substance: DUTASTERIDE
  12. CELECOX [Concomitant]
     Active Substance: CELECOXIB
  13. MENATETRENONE [Concomitant]
     Active Substance: MENATETRENONE
  14. MUCOSTA [Concomitant]
     Active Substance: REBAMIPIDE
  15. HYALEIN [Concomitant]
     Active Substance: HYALURONATE SODIUM
  16. GLACTIV [Suspect]
     Active Substance: SITAGLIPTIN
     Dosage: 50 MG, QD
     Route: 048
     Dates: start: 201301
  17. NEXIUM [Concomitant]
     Active Substance: ESOMEPRAZOLE MAGNESIUM
  18. ISOSORBIDE MONONITRATE. [Concomitant]
     Active Substance: ISOSORBIDE MONONITRATE
  19. UBRETID [Concomitant]
     Active Substance: DISTIGMINE BROMIDE

REACTIONS (1)
  - Interstitial lung disease [Unknown]

NARRATIVE: CASE EVENT DATE: 201606
